FAERS Safety Report 13843513 (Version 2)
Quarter: 2017Q3

REPORT INFORMATION
  Report Type: Spontaneous
  Country: US (occurrence: US)
  Receive Date: 20170808
  Receipt Date: 20170810
  Transmission Date: 20171127
  Serious: Yes (Hospitalization)
  Sender: FDA-Public Use
  Company Number: US-B.I. PHARMACEUTICALS,INC./RIDGEFIELD-2017-BI-043228

PATIENT
  Age: 70 Year
  Sex: Male

DRUGS (15)
  1. FLUOXETINE [Concomitant]
     Active Substance: FLUOXETINE HYDROCHLORIDE
     Indication: ANXIETY
     Dosage: ONE CAPSULE DAILY;  FORM STRENGTH: 10MG; FORMULATION: CAPSULE
     Route: 048
  2. DIAZEPAM. [Concomitant]
     Active Substance: DIAZEPAM
     Indication: ANXIETY
  3. MUCINEX DM [Concomitant]
     Active Substance: DEXTROMETHORPHAN HYDROBROMIDE\GUAIFENESIN
     Indication: PRODUCT USED FOR UNKNOWN INDICATION
     Route: 065
  4. SOTALOL. [Concomitant]
     Active Substance: SOTALOL
     Indication: HEART RATE ABNORMAL
     Dosage: ONE CAPLET TWICE A DAY;  FORM STRENGTH: 80MG; FORMULATION: CAPLET
     Route: 048
  5. ATORVASTATIN [Concomitant]
     Active Substance: ATORVASTATIN
     Indication: BLOOD CHOLESTEROL INCREASED
     Dosage: ONE CAPLET AT BEDTIME;  FORM STRENGTH: 80MG; FORMULATION: CAPLET
     Route: 048
  6. PRADAXA [Suspect]
     Active Substance: DABIGATRAN ETEXILATE MESYLATE
     Indication: ATRIAL FIBRILLATION
     Dosage: ONE CAPSULE TWICE A DAY;  FORM STRENGTH: 75 MG; FORMULATION: CAPSULE? ADMINISTRATION CORRECT? YES ?A
     Route: 048
     Dates: start: 2009, end: 201610
  7. LISINOPRIL. [Concomitant]
     Active Substance: LISINOPRIL
     Indication: HYPERTENSION
     Dosage: ONE CAPLET DAILY;  FORM STRENGTH: 5MG; FORMULATION: CAPLET
     Route: 048
  8. LEVOTHYROXINE. [Concomitant]
     Active Substance: LEVOTHYROXINE
     Indication: HYPOTHYROIDISM
     Dosage: ONE CAPLET DAILY;  FORM STRENGTH: 100MG; FORMULATION: CAPLET
     Route: 048
  9. PANTOPRAZOLE [Concomitant]
     Active Substance: PANTOPRAZOLE
     Indication: GASTROOESOPHAGEAL REFLUX DISEASE
     Dosage: ONE CAPLET DAILY;  FORM STRENGTH: 40MG; FORMULATION: CAPLET
     Route: 048
  10. DIAZEPAM. [Concomitant]
     Active Substance: DIAZEPAM
     Indication: MYOCLONUS
     Dosage: ONE CAPLET AS NEEDED;  FORM STRENGTH: 2MG; FORMULATION: CAPLET
     Route: 048
  11. FENOFIBRATE. [Concomitant]
     Active Substance: FENOFIBRATE
     Indication: BLOOD CHOLESTEROL INCREASED
     Dosage: ONE CAPLET BID;  FORM STRENGTH: 54MG; FORMULATION: CAPLET
     Route: 048
  12. PRADAXA [Suspect]
     Active Substance: DABIGATRAN ETEXILATE MESYLATE
     Indication: CORONARY ARTERIAL STENT INSERTION
     Dosage: ONE CAPSULE TWICE A DAY;  FORM STRENGTH: 150MG; FORMULATION: CAPSULE? ADMINISTRATION CORRECT? YES ?A
     Route: 048
     Dates: start: 201610
  13. CLOPIDOGREL [Concomitant]
     Active Substance: CLOPIDOGREL BISULFATE
     Indication: ANTICOAGULANT THERAPY
     Dosage: ONE TABLET DAILY;  FORM STRENGTH: 75MG; FORMULATION: TABLET
     Route: 048
     Dates: start: 201705
  14. LISINOPRIL. [Concomitant]
     Active Substance: LISINOPRIL
     Indication: HEART RATE ABNORMAL
  15. PROBIOTICS [Concomitant]
     Active Substance: PROBIOTICS NOS
     Indication: SUPPLEMENTATION THERAPY
     Route: 065

REACTIONS (8)
  - Coronary arterial stent insertion [Recovered/Resolved]
  - Limb injury [Recovered/Resolved]
  - Increased tendency to bruise [Unknown]
  - Device dislocation [Unknown]
  - Implantable defibrillator replacement [Recovered/Resolved]
  - Aortic valve replacement [Not Recovered/Not Resolved]
  - Haemorrhage subcutaneous [Unknown]
  - Medical device change [Recovered/Resolved]

NARRATIVE: CASE EVENT DATE: 201508
